FAERS Safety Report 9394531 (Version 2)
Quarter: 2013Q3

REPORT INFORMATION
  Report Type: Report from Study
  Country: BR (occurrence: BR)
  Receive Date: 20130711
  Receipt Date: 20130805
  Transmission Date: 20140515
  Serious: Yes (Other)
  Sender: FDA-Public Use
  Company Number: PHHY2013BR071782

PATIENT
  Sex: Female
  Weight: 19.7 kg

DRUGS (5)
  1. EXJADE [Suspect]
     Indication: THALASSAEMIA BETA
     Dosage: 125 MG, DAILY
  2. EXJADE [Suspect]
     Dosage: 125 MG, DAILY
  3. FOLIC ACID [Concomitant]
     Dosage: UNK UKN, UNK
  4. AZITHROMYCIN [Concomitant]
     Dosage: UNK UKN, UNK
  5. ALERGIN [Concomitant]
     Dosage: UNK UKN, UNK

REACTIONS (3)
  - Urinary tract infection [Recovered/Resolved]
  - Iron overload [Recovered/Resolved]
  - Pyrexia [Recovered/Resolved]
